FAERS Safety Report 18173007 (Version 1)
Quarter: 2020Q3

REPORT INFORMATION
  Report Type: Spontaneous
  Country: KR (occurrence: KR)
  Receive Date: 20200820
  Receipt Date: 20200820
  Transmission Date: 20201103
  Serious: Yes (Other)
  Sender: FDA-Public Use
  Company Number: KR-LUPIN PHARMACEUTICALS INC.-2020-04926

PATIENT

DRUGS (4)
  1. KETOROLAC [Suspect]
     Active Substance: KETOROLAC TROMETHAMINE
     Indication: PROCEDURAL PAIN
     Dosage: UNK
     Route: 065
  2. PETHIDINE [Suspect]
     Active Substance: MEPERIDINE
     Indication: PROCEDURAL PAIN
     Dosage: UNK
     Route: 065
  3. FENTANYL. [Suspect]
     Active Substance: FENTANYL
     Indication: PROCEDURAL PAIN
     Dosage: UNK?AS PATIENT?CONTROLLED ANALGESIA
     Route: 065
  4. TRAMADOL. [Suspect]
     Active Substance: TRAMADOL
     Indication: PROCEDURAL PAIN
     Dosage: UNK
     Route: 065

REACTIONS (2)
  - Prescribed overdose [Unknown]
  - Symptom masked [Unknown]
